FAERS Safety Report 6953985-3 (Version None)
Quarter: 2010Q3

REPORT INFORMATION
  Report Type: 
  Country: None (occurrence: None)
  Receive Date: 20100829
  Receipt Date: 20100702
  Transmission Date: 20110219
  Serious: No
  Sender: FDA-Public Use
  Company Number: US-ABBOTT-10P-163-0655040-00

PATIENT
  Sex: Female
  Weight: 66.738 kg

DRUGS (4)
  1. NIASPAN [Suspect]
     Indication: HIGH DENSITY LIPOPROTEIN INCREASED
     Dates: start: 20100301
  2. NIASPAN [Suspect]
  3. NIASPAN [Suspect]
     Dosage: AT BEDTIME
  4. ESTRACE [Concomitant]
     Indication: VITAMIN SUPPLEMENTATION

REACTIONS (2)
  - MYALGIA [None]
  - PALPITATIONS [None]
